FAERS Safety Report 8849367 (Version 1)
Quarter: 2012Q4

REPORT INFORMATION
  Report Type: 
  Country: US (occurrence: None)
  Receive Date: 20121018
  Receipt Date: 20121018
  Transmission Date: 20130627
  Serious: Yes (Hospitalization)
  Sender: FDA-Public Use
  Company Number: None

PATIENT
  Sex: Male
  Weight: 71.7 kg

DRUGS (1)
  1. CETUXIMAB [Suspect]

REACTIONS (8)
  - Drug eruption [None]
  - Mucosal inflammation [None]
  - Pyrexia [None]
  - Asthenia [None]
  - Oral pain [None]
  - Aphagia [None]
  - Fatigue [None]
  - Rhinorrhoea [None]
